FAERS Safety Report 7334923-0 (Version None)
Quarter: 2011Q1

REPORT INFORMATION
  Report Type: 
  Country: None (occurrence: None)
  Receive Date: 20110302
  Receipt Date: 20110302
  Transmission Date: 20110831
  Serious: Yes (Other)
  Sender: FDA-Public Use
  Company Number: None

PATIENT

DRUGS (1)
  1. LEVOTHYROXINE SODIUM [Suspect]
     Dosage: 50 MCG QD PO
     Route: 048
     Dates: start: 20070101

REACTIONS (1)
  - THERAPEUTIC RESPONSE DECREASED [None]
